FAERS Safety Report 18299021 (Version 1)
Quarter: 2020Q3

REPORT INFORMATION
  Report Type: Other
  Country: SE (occurrence: SE)
  Receive Date: 20200923
  Receipt Date: 20200923
  Transmission Date: 20201103
  Serious: Yes (Death, Hospitalization, Other)
  Sender: FDA-Public Use
  Company Number: SE-ROCHE-2679104

PATIENT

DRUGS (5)
  1. CYCLOPHOSPHAMIDE. [Suspect]
     Active Substance: CYCLOPHOSPHAMIDE
     Indication: DIFFUSE LARGE B-CELL LYMPHOMA
     Route: 065
  2. DOXORUBICIN [Suspect]
     Active Substance: DOXORUBICIN
     Indication: DIFFUSE LARGE B-CELL LYMPHOMA
     Route: 065
  3. VINCRISTINE [Suspect]
     Active Substance: VINCRISTINE
     Indication: DIFFUSE LARGE B-CELL LYMPHOMA
     Route: 065
  4. RITUXIMAB. [Suspect]
     Active Substance: RITUXIMAB
     Indication: DIFFUSE LARGE B-CELL LYMPHOMA
     Route: 065
  5. PREDNISONE. [Suspect]
     Active Substance: PREDNISONE
     Indication: DIFFUSE LARGE B-CELL LYMPHOMA
     Route: 065

REACTIONS (13)
  - Haematotoxicity [Unknown]
  - Cardiovascular disorder [Unknown]
  - Embolism [Unknown]
  - Thrombocytopenia [Unknown]
  - Herpes simplex [Unknown]
  - Electrolyte imbalance [Unknown]
  - Anaemia [Unknown]
  - Neutropenic sepsis [Fatal]
  - Neutropenia [Unknown]
  - Infection [Unknown]
  - Herpes zoster [Unknown]
  - Cardiac failure [Fatal]
  - Pneumocystis jirovecii pneumonia [Unknown]
